FAERS Safety Report 14529103 (Version 1)
Quarter: 2018Q1

REPORT INFORMATION
  Report Type: Spontaneous
  Country: US (occurrence: US)
  Receive Date: 20180213
  Receipt Date: 20180213
  Transmission Date: 20180509
  Serious: Yes (Hospitalization)
  Sender: FDA-Public Use
  Company Number: None

PATIENT
  Age: 46 Year
  Sex: Male
  Weight: 80.6 kg

DRUGS (5)
  1. ZEPATIER [Suspect]
     Active Substance: ELBASVIR\GRAZOPREVIR
     Indication: HEPATITIS C
     Dosage: 50-100MG QD ORAL?RESTART: 8/14/17
     Route: 048
     Dates: start: 20170527, end: 20170721
  2. XANAX [Concomitant]
     Active Substance: ALPRAZOLAM
  3. NAPROXEN. [Concomitant]
     Active Substance: NAPROXEN
  4. LURASIDONE [Concomitant]
     Active Substance: LURASIDONE
  5. OXYCODONE [Concomitant]
     Active Substance: OXYCODONE

REACTIONS (1)
  - Detoxification [None]

NARRATIVE: CASE EVENT DATE: 20170802
